FAERS Safety Report 15899410 (Version 1)
Quarter: 2019Q1

REPORT INFORMATION
  Report Type: Spontaneous
  Country: US (occurrence: US)
  Receive Date: 20190201
  Receipt Date: 20190201
  Transmission Date: 20190417
  Serious: Yes (Hospitalization)
  Sender: FDA-Public Use
  Company Number: US-VERTEX PHARMACEUTICALS-2019-000717

PATIENT
  Age: 36 Year
  Sex: Male

DRUGS (18)
  1. ATENOLOL. [Concomitant]
     Active Substance: ATENOLOL
  2. CALCITRATE [Concomitant]
     Active Substance: CALCIUM CITRATE
  3. VITAMIN D3 [Concomitant]
     Active Substance: CHOLECALCIFEROL
  4. DULERA [Concomitant]
     Active Substance: FORMOTEROL FUMARATE DIHYDRATE\MOMETASONE FUROATE
  5. RANITIDINE. [Concomitant]
     Active Substance: RANITIDINE
  6. NOVOLOG [Concomitant]
     Active Substance: INSULIN ASPART
  7. CAYSTON [Concomitant]
     Active Substance: AZTREONAM
  8. PULMOZYME [Concomitant]
     Active Substance: DORNASE ALFA
  9. AZITHROMYCIN ANHYDROUS. [Concomitant]
     Active Substance: AZITHROMYCIN ANHYDROUS
  10. PROVENTIL [Concomitant]
     Active Substance: ALBUTEROL
  11. PERTZYE [Concomitant]
     Active Substance: PANCRELIPASE AMYLASE\PANCRELIPASE LIPASE\PANCRELIPASE PROTEASE
  12. POTASSIUM CHLORIDE. [Concomitant]
     Active Substance: POTASSIUM CHLORIDE
  13. BETHKIS [Concomitant]
     Active Substance: TOBRAMYCIN
  14. IBUPROFEN. [Concomitant]
     Active Substance: IBUPROFEN
  15. OSELTAMIVIR [Concomitant]
     Active Substance: OSELTAMIVIR
  16. SODIUM CHLORIDE. [Concomitant]
     Active Substance: SODIUM CHLORIDE
  17. SYMDEKO [Suspect]
     Active Substance: IVACAFTOR\TEZACAFTOR
     Indication: CYSTIC FIBROSIS
     Dosage: 100MG TEZACAFTOR/150MG IVACAFTOR, QAM; 150MG IVACAFTOR, QPM
     Route: 048
     Dates: start: 20180521
  18. LANTUS [Concomitant]
     Active Substance: INSULIN GLARGINE

REACTIONS (1)
  - Hospitalisation [Unknown]

NARRATIVE: CASE EVENT DATE: 20181218
